FAERS Safety Report 4985156-4 (Version None)
Quarter: 2006Q2

REPORT INFORMATION
  Report Type: 
  Country: None (occurrence: None)
  Receive Date: 20060427
  Receipt Date: 20050812
  Transmission Date: 20061013
  Serious: Yes (Hospitalization)
  Sender: FDA-Public Use
  Company Number: NO-MERCK-0508NOR00009

PATIENT
  Age: 66 Year
  Sex: Female

DRUGS (10)
  1. VIOXX [Suspect]
     Indication: BACK PAIN
     Route: 065
     Dates: start: 20030612, end: 20031201
  2. VIOXX [Suspect]
     Indication: PAIN IN EXTREMITY
     Route: 065
     Dates: start: 20030612, end: 20031201
  3. CALCIUM (UNSPECIFIED) [Concomitant]
     Route: 065
  4. ALENDRONATE SODIUM [Concomitant]
     Indication: OSTEOPOROSIS
     Route: 065
  5. IPRATROPIUM BROMIDE [Concomitant]
     Indication: CHRONIC OBSTRUCTIVE PULMONARY DISEASE
     Route: 065
  6. TRAMADOL HYDROCHLORIDE [Concomitant]
     Indication: PAIN
     Route: 065
     Dates: start: 20031201
  7. ESTRIOL [Concomitant]
     Route: 065
  8. PAROXETINE HYDROCHLORIDE [Concomitant]
     Route: 065
  9. ESOMEPRAZOLE MAGNESIUM [Concomitant]
     Route: 065
  10. ATORVASTATIN CALCIUM [Concomitant]
     Indication: BLOOD CHOLESTEROL INCREASED
     Route: 065

REACTIONS (5)
  - CARDIAC ARREST [None]
  - CARDIAC FAILURE [None]
  - MYOCARDIAL INFARCTION [None]
  - PNEUMONIA [None]
  - VENTRICULAR FIBRILLATION [None]
